FAERS Safety Report 18503616 (Version 1)
Quarter: 2020Q4

REPORT INFORMATION
  Report Type: Spontaneous
  Country: US (occurrence: US)
  Receive Date: 20201113
  Receipt Date: 20201113
  Transmission Date: 20210114
  Serious: No
  Sender: FDA-Public Use
  Company Number: US-LUNDBECK-DKLU3022291

PATIENT
  Age: 56 Year
  Sex: Female

DRUGS (1)
  1. VYEPTI [Suspect]
     Active Substance: EPTINEZUMAB-JJMR
     Indication: MIGRAINE
     Route: 042
     Dates: start: 20200910

REACTIONS (4)
  - Cough [Recovered/Resolved]
  - Pruritus [Recovered/Resolved]
  - Infusion site pain [Unknown]
  - Throat irritation [Recovered/Resolved]
